FAERS Safety Report 13628261 (Version 1)
Quarter: 2017Q2

REPORT INFORMATION
  Report Type: Spontaneous
  Country: US (occurrence: US)
  Receive Date: 20170531
  Receipt Date: 20170531
  Transmission Date: 20170830
  Serious: Yes (Hospitalization)
  Sender: FDA-Public Use
  Company Number: US-ASTELLAS-1841513

PATIENT
  Sex: Female
  Weight: 79.45 kg

DRUGS (23)
  1. ATIVAN [Concomitant]
     Active Substance: LORAZEPAM
     Route: 048
     Dates: start: 20160914
  2. EMLA [Concomitant]
     Active Substance: LIDOCAINE\PRILOCAINE
     Route: 065
     Dates: start: 20160914
  3. TARCEVA [Suspect]
     Active Substance: ERLOTINIB HYDROCHLORIDE
     Indication: LUNG NEOPLASM MALIGNANT
     Route: 048
     Dates: start: 20160819
  4. TARCEVA [Suspect]
     Active Substance: ERLOTINIB HYDROCHLORIDE
     Route: 048
     Dates: start: 20160919
  5. EMEND [Concomitant]
     Active Substance: APREPITANT
     Route: 048
  6. METOPROLOL TARTRATE. [Concomitant]
     Active Substance: METOPROLOL TARTRATE
  7. ZANTAC [Concomitant]
     Active Substance: RANITIDINE HYDROCHLORIDE
  8. GABAPENTIN. [Concomitant]
     Active Substance: GABAPENTIN
  9. ATORVASTATIN [Concomitant]
     Active Substance: ATORVASTATIN
     Route: 048
  10. POTASSIUM CHLORATE [Concomitant]
     Active Substance: POTASSIUM CHLORATE
     Route: 065
     Dates: start: 20160914
  11. PREDNISONE. [Concomitant]
     Active Substance: PREDNISONE
     Route: 065
     Dates: start: 20160914
  12. LEXAPRO [Concomitant]
     Active Substance: ESCITALOPRAM OXALATE
  13. LORAZEPAM. [Concomitant]
     Active Substance: LORAZEPAM
  14. LYRICA [Concomitant]
     Active Substance: PREGABALIN
  15. ZOFRAN [Concomitant]
     Active Substance: ONDANSETRON HYDROCHLORIDE
  16. OMEPRAZOLE. [Concomitant]
     Active Substance: OMEPRAZOLE
  17. ELIQUIS [Concomitant]
     Active Substance: APIXABAN
     Route: 048
  18. PROMETHAZINE [Concomitant]
     Active Substance: PROMETHAZINE\PROMETHAZINE HYDROCHLORIDE
  19. SIMVASTATIN. [Concomitant]
     Active Substance: SIMVASTATIN
  20. VESICARE [Concomitant]
     Active Substance: SOLIFENACIN SUCCINATE
  21. FLUZONE (UNITED STATES) [Concomitant]
     Route: 030
     Dates: start: 20170209
  22. ASPIRIN. [Concomitant]
     Active Substance: ASPIRIN
     Route: 048
  23. LASIX [Concomitant]
     Active Substance: FUROSEMIDE

REACTIONS (3)
  - Cerebrovascular accident [Unknown]
  - Decreased appetite [Unknown]
  - Diarrhoea [Unknown]
